FAERS Safety Report 14471527 (Version 1)
Quarter: 2018Q1

REPORT INFORMATION
  Report Type: Spontaneous
  Country: US (occurrence: US)
  Receive Date: 20180131
  Receipt Date: 20180131
  Transmission Date: 20180509
  Serious: No
  Sender: FDA-Public Use
  Company Number: US-EISAI MEDICAL RESEARCH-EC-2018-035298

PATIENT
  Age: 63 Year
  Sex: Female

DRUGS (3)
  1. PILOCARPINE. [Suspect]
     Active Substance: PILOCARPINE
     Route: 048
  2. PILOCARPINE. [Suspect]
     Active Substance: PILOCARPINE
     Route: 048
     Dates: end: 20180106
  3. PILOCARPINE. [Suspect]
     Active Substance: PILOCARPINE
     Indication: DRY MOUTH
     Route: 048
     Dates: start: 201607

REACTIONS (1)
  - Syncope [Unknown]

NARRATIVE: CASE EVENT DATE: 20171231
